FAERS Safety Report 8163737-7 (Version None)
Quarter: 2012Q1

REPORT INFORMATION
  Report Type: 
  Country: None (occurrence: None)
  Receive Date: 20120224
  Receipt Date: 20120215
  Transmission Date: 20120608
  Serious: Yes (Life-Threatening)
  Sender: FDA-Public Use
  Company Number: JP-JNJFOC-20120104683

PATIENT
  Sex: Female
  Weight: 63 kg

DRUGS (10)
  1. REMICADE [Suspect]
     Indication: RHEUMATOID ARTHRITIS
     Dosage: 51ST INFUSION
     Route: 042
     Dates: start: 20111128
  2. FOLIC ACID [Concomitant]
     Indication: RHEUMATOID ARTHRITIS
     Route: 048
  3. SELBEX [Concomitant]
     Indication: RHEUMATOID ARTHRITIS
     Route: 048
  4. ETODOLAC [Concomitant]
     Indication: RHEUMATOID ARTHRITIS
     Route: 048
  5. ONEALFA [Concomitant]
     Indication: OSTEOPOROSIS
     Route: 048
  6. OPALMON [Concomitant]
     Indication: SPINAL COLUMN STENOSIS
     Route: 048
  7. REMICADE [Suspect]
     Route: 042
     Dates: start: 20091130
  8. REMICADE [Suspect]
     Route: 042
     Dates: start: 20091005
  9. METHOTREXATE [Suspect]
     Indication: RHEUMATOID ARTHRITIS
     Route: 048
     Dates: start: 20031008, end: 20111227
  10. REMICADE [Suspect]
     Route: 042
     Dates: start: 20040603

REACTIONS (1)
  - LYMPHOMA [None]
